FAERS Safety Report 7612847-9 (Version None)
Quarter: 2011Q3

REPORT INFORMATION
  Report Type: 
  Country: None (occurrence: None)
  Receive Date: 20110708
  Receipt Date: 20100713
  Transmission Date: 20111222
  Serious: Yes (Life-Threatening, Hospitalization)
  Sender: FDA-Public Use
  Company Number: GER/GER/10/0014252

PATIENT
  Age: 68 Year
  Sex: Male

DRUGS (6)
  1. ESOMEPRAZOLE (ESOMEPRAZOLE) [Suspect]
     Indication: VERTEBRAL ARTERY STENOSIS
  2. HEPARIN [Concomitant]
  3. CLOPIDOGREL [Suspect]
     Indication: VERTEBRAL ARTERY STENOSIS
  4. ENOXAPARIN (ENOXAPARAIN) [Concomitant]
  5. ASPIRIN [Concomitant]
  6. TIROFIBAN (TIROFIBAN) [Concomitant]

REACTIONS (8)
  - CEREBRAL INFARCTION [None]
  - RESPIRATORY FAILURE [None]
  - BRAIN STEM INFARCTION [None]
  - SEPSIS [None]
  - THROMBOSIS IN DEVICE [None]
  - RENAL FAILURE [None]
  - DISEASE PROGRESSION [None]
  - NO THERAPEUTIC RESPONSE [None]
